FAERS Safety Report 11293447 (Version 1)
Quarter: 2015Q3

REPORT INFORMATION
  Report Type: Report from Study
  Country: JP (occurrence: JP)
  Receive Date: 20150722
  Receipt Date: 20150722
  Transmission Date: 20151125
  Serious: Yes (Hospitalization)
  Sender: FDA-Public Use
  Company Number: JP-ASTRAZENECA-2015SE70510

PATIENT
  Age: 63 Year
  Sex: Female

DRUGS (33)
  1. STROCAIN [Concomitant]
     Active Substance: OXETHAZAINE
     Indication: ABDOMINAL PAIN UPPER
     Dates: start: 20070807, end: 20120330
  2. KOLANTYL [Concomitant]
     Active Substance: DICYCLOMINE HYDROCHLORIDE
     Indication: ABDOMINAL PAIN UPPER
     Dates: start: 20070807, end: 20120330
  3. THIATON [Concomitant]
     Active Substance: TIQUIZIUM BROMIDE
     Indication: ABDOMINAL PAIN UPPER
     Dates: start: 20070807, end: 20120330
  4. LOXONIN [Concomitant]
     Active Substance: LOXOPROFEN SODIUM
     Indication: ARTHRALGIA
     Dates: start: 20070807, end: 20120330
  5. ALLOID [Concomitant]
     Indication: ABDOMINAL PAIN UPPER
     Dates: start: 20070807, end: 20120330
  6. SELBEX [Concomitant]
     Active Substance: TEPRENONE
     Indication: ABDOMINAL PAIN UPPER
     Dates: start: 20070807, end: 20120330
  7. BUSCOPAN [Concomitant]
     Active Substance: BUTYLSCOPOLAMINE BROMIDE
     Indication: ABDOMINAL PAIN UPPER
     Dates: start: 20070807, end: 20120330
  8. BUSCOPAN [Concomitant]
     Active Substance: BUTYLSCOPOLAMINE BROMIDE
     Indication: DECREASED APPETITE
     Dates: start: 20070807, end: 20120330
  9. BUSCOPAN [Concomitant]
     Active Substance: BUTYLSCOPOLAMINE BROMIDE
     Indication: DECREASED APPETITE
     Dates: start: 20070807, end: 20120330
  10. SCOPOLIA EXTRACT [Concomitant]
     Indication: ABDOMINAL PAIN UPPER
     Dates: start: 20070807, end: 20120330
  11. OMERAP [Concomitant]
     Indication: ABDOMINAL PAIN UPPER
     Dates: start: 20070807, end: 20120330
  12. TOUGHMAC E [Concomitant]
     Active Substance: AMYLASE\LIPASE\PROTEASE
     Indication: ABDOMINAL PAIN UPPER
     Dosage: 3 C/DAY
     Dates: start: 20070807, end: 20120330
  13. LAC-B GRANULAR POWDER [Concomitant]
     Indication: ABDOMINAL PAIN UPPER
     Dates: start: 20070807, end: 20120330
  14. PROTECADIN [Concomitant]
     Active Substance: LAFUTIDINE
     Indication: ABDOMINAL PAIN UPPER
     Dates: start: 20070807, end: 20120330
  15. ARIMIDEX [Suspect]
     Active Substance: ANASTROZOLE
     Indication: OESTROGEN RECEPTOR POSITIVE BREAST CANCER
     Route: 048
     Dates: start: 20070807, end: 20120330
  16. LOXONIN [Concomitant]
     Active Substance: LOXOPROFEN SODIUM
     Indication: ARTHRALGIA
     Dates: start: 20070807, end: 20120330
  17. PARIET [Concomitant]
     Active Substance: RABEPRAZOLE SODIUM
     Indication: ABDOMINAL PAIN UPPER
     Dates: start: 20070807, end: 20120330
  18. BUSCOPAN [Concomitant]
     Active Substance: BUTYLSCOPOLAMINE BROMIDE
     Indication: ABDOMINAL PAIN UPPER
     Dates: start: 20070807, end: 20120330
  19. ALLOID G [Concomitant]
     Active Substance: SODIUM ALGINATE
     Indication: ABDOMINAL PAIN UPPER
     Dates: start: 20070807, end: 20120330
  20. DAIKENCHUTA [Concomitant]
     Indication: DECREASED APPETITE
     Dates: start: 20070807, end: 20120330
  21. ULGUT [Concomitant]
     Indication: ABDOMINAL PAIN UPPER
     Dates: start: 20070807, end: 20120330
  22. OMEPRAL [Concomitant]
     Active Substance: OMEPRAZOLE
     Indication: ABDOMINAL PAIN UPPER
     Dates: start: 20070807, end: 20120330
  23. ALLOID G [Concomitant]
     Active Substance: SODIUM ALGINATE
     Indication: ABDOMINAL PAIN UPPER
     Dates: start: 20070807, end: 20120330
  24. CLALET [Concomitant]
     Indication: ABDOMINAL PAIN UPPER
     Dates: start: 20070807, end: 20120330
  25. GASTER [Concomitant]
     Active Substance: FAMOTIDINE
     Indication: ABDOMINAL PAIN UPPER
     Dates: start: 20070807, end: 20120330
  26. CEFMETAZOLE [Concomitant]
     Active Substance: CEFMETAZOLE
     Indication: DECREASED APPETITE
     Dates: start: 20070807, end: 20120330
  27. MEYLON [Concomitant]
     Active Substance: SODIUM BICARBONATE
     Indication: DIZZINESS
     Dates: start: 20070807, end: 20120330
  28. SOLITA-T [Concomitant]
     Indication: ABDOMINAL PAIN UPPER
     Dates: start: 20070807, end: 20120330
  29. PRIMPERAN [Concomitant]
     Active Substance: METOCLOPRAMIDE HYDROCHLORIDE
     Indication: DIZZINESS
     Dates: start: 20070807, end: 20120330
  30. MERISLON [Concomitant]
     Active Substance: BETAHISTINE MESILATE
     Indication: DIZZINESS
     Dates: start: 20070807, end: 20120330
  31. ACINON [Concomitant]
     Active Substance: NIZATIDINE
     Indication: ABDOMINAL PAIN UPPER
     Dates: start: 20070807, end: 20120330
  32. BUSCOPAN [Concomitant]
     Active Substance: BUTYLSCOPOLAMINE BROMIDE
     Indication: ABDOMINAL PAIN UPPER
     Dates: start: 20070807, end: 20120330
  33. BUSCOPAN [Concomitant]
     Active Substance: BUTYLSCOPOLAMINE BROMIDE
     Indication: DECREASED APPETITE
     Dates: start: 20070807, end: 20120330

REACTIONS (1)
  - Abdominal pain upper [Unknown]

NARRATIVE: CASE EVENT DATE: 20110827
